FAERS Safety Report 6707366-8 (Version None)
Quarter: 2010Q2

REPORT INFORMATION
  Report Type: 
  Country: None (occurrence: None)
  Receive Date: 20100503
  Receipt Date: 20090611
  Transmission Date: 20101027
  Serious: No
  Sender: FDA-Public Use
  Company Number: US-ASTRAZENECA-2009UW14895

PATIENT
  Age: 19377 Day
  Sex: Male

DRUGS (2)
  1. NEXIUM [Suspect]
     Indication: GASTRIC ULCER
     Dosage: 80 MG, 1 CAPSULE, Q6HRS
     Route: 048
     Dates: start: 20040101, end: 20090329
  2. DRONABINOL [Interacting]
     Indication: FIBROMYALGIA
     Dosage: 2.5 MG, 1 CAPSULE, Q6HRS
     Route: 048
     Dates: start: 20090326, end: 20090508

REACTIONS (3)
  - DRUG INEFFECTIVE [None]
  - DRUG INTERACTION [None]
  - MEDICATION RESIDUE [None]
